FAERS Safety Report 7988950-0 (Version None)
Quarter: 2011Q4

REPORT INFORMATION
  Report Type: 
  Country: None (occurrence: None)
  Receive Date: 20111219
  Receipt Date: 20111207
  Transmission Date: 20120403
  Serious: Yes (Other)
  Sender: FDA-Public Use
  Company Number: US-BAYER-2011-048503

PATIENT
  Age: 20 Year
  Sex: Female
  Weight: 104.76 kg

DRUGS (12)
  1. IBUPROFEN [Concomitant]
  2. PROMETHAZINE [Concomitant]
     Indication: NAUSEA
     Dosage: 25 MG, PRN
     Route: 048
  3. RANITIDINE [Concomitant]
     Dosage: 150 MG, BID
     Route: 048
  4. PROMETHEGAN [Concomitant]
     Dosage: 25 MG, UNK
     Route: 054
     Dates: start: 20060719
  5. PITOCIN [Concomitant]
  6. MEPROZINE [Concomitant]
     Dosage: UNK
     Route: 048
     Dates: start: 20061017
  7. YAZ [Suspect]
     Dosage: UNK
     Dates: start: 20060101
  8. PROMETHAZINE [Concomitant]
     Indication: VOMITING
  9. CERVIDIL [Concomitant]
  10. OXYCODONE HCL AND ACETAMINOPHEN [Concomitant]
     Indication: PAIN
     Dosage: UNK
     Route: 048
     Dates: start: 20060730
  11. ALBUTEROL [Concomitant]
     Dosage: UNK UNK, PRN
  12. NEXIUM [Concomitant]
     Dosage: 40 MG, ONCE
     Route: 048
     Dates: start: 20060730

REACTIONS (4)
  - CHOLECYSTECTOMY [None]
  - CHOLECYSTITIS CHRONIC [None]
  - PAIN [None]
  - CHOLELITHIASIS [None]
